FAERS Safety Report 5846833-6 (Version None)
Quarter: 2008Q3

REPORT INFORMATION
  Report Type: 
  Country: None (occurrence: None)
  Receive Date: 20080815
  Receipt Date: 20080806
  Transmission Date: 20090109
  Serious: Yes (Other)
  Sender: FDA-Public Use
  Company Number: PHEH2008US06927

PATIENT
  Age: 70 Year
  Sex: Female

DRUGS (3)
  1. TEKTURNA [Suspect]
     Dosage: UNK
     Dates: start: 20080701
  2. COZAAR [Concomitant]
     Dosage: UNK
  3. TENORMIN [Concomitant]

REACTIONS (2)
  - PHOTOSENSITIVITY REACTION [None]
  - RASH [None]
